FAERS Safety Report 4684358-4 (Version None)
Quarter: 2005Q2

REPORT INFORMATION
  Report Type: 
  Country: None (occurrence: None)
  Receive Date: 20050531
  Receipt Date: 20040824
  Transmission Date: 20051028
  Serious: Yes (Hospitalization)
  Sender: FDA-Public Use
  Company Number: 200416360US

PATIENT
  Age: 53 Year
  Sex: Male

DRUGS (1)
  1. LOVENOX [Suspect]
     Indication: INTRACARDIAC THROMBUS
     Dosage: 100 MG BID
     Dates: start: 20040821

REACTIONS (1)
  - LOWER GASTROINTESTINAL HAEMORRHAGE [None]
